FAERS Safety Report 22271865 (Version 2)
Quarter: 2023Q2

REPORT INFORMATION
  Report Type: Spontaneous
  Country: RU (occurrence: RU)
  Receive Date: 20230502
  Receipt Date: 20230619
  Transmission Date: 20230722
  Serious: Yes (Hospitalization)
  Sender: FDA-Public Use
  Company Number: RU-JNJFOC-20230456174

PATIENT
  Age: 5 Decade
  Sex: Male
  Weight: 65 kg

DRUGS (14)
  1. SIRTURO [Suspect]
     Active Substance: BEDAQUILINE FUMARATE
     Indication: Tuberculosis
     Dosage: 0.2 UNIT UNSPECIFIED
     Route: 048
     Dates: start: 20221114, end: 20230421
  2. SIRTURO [Suspect]
     Active Substance: BEDAQUILINE FUMARATE
     Route: 048
     Dates: start: 20230521
  3. CLOFAZIMINE [Suspect]
     Active Substance: CLOFAZIMINE
     Indication: Tuberculosis
     Dosage: 0.1 UNSPECIFIED
     Route: 065
     Dates: start: 20221114, end: 20230421
  4. CLOFAZIMINE [Suspect]
     Active Substance: CLOFAZIMINE
     Route: 065
     Dates: start: 20230524
  5. LINEZOLID [Suspect]
     Active Substance: LINEZOLID
     Indication: Tuberculosis
     Dosage: 0.6 UNIT UNSPECIFIED
     Route: 065
     Dates: start: 20221114, end: 20230421
  6. LINEZOLID [Suspect]
     Active Substance: LINEZOLID
     Route: 065
     Dates: start: 20230524
  7. LEVOFLOXACIN [Suspect]
     Active Substance: LEVOFLOXACIN
     Indication: Tuberculosis
     Dosage: 1 UNIT UNSPECIFIED
     Route: 065
     Dates: start: 20221114, end: 20230421
  8. LEVOFLOXACIN [Suspect]
     Active Substance: LEVOFLOXACIN
     Route: 065
     Dates: start: 20230521
  9. TENOFOVIR [Concomitant]
     Active Substance: TENOFOVIR
  10. LAMIVUDINE [Concomitant]
     Active Substance: LAMIVUDINE
  11. RALTEGRAVIR [Concomitant]
     Active Substance: RALTEGRAVIR
  12. DOLUTEGRAVIR [Concomitant]
     Active Substance: DOLUTEGRAVIR
  13. COTRIMOXAZOLE [Concomitant]
     Active Substance: SULFAMETHOXAZOLE\TRIMETHOPRIM
  14. FLUCONAZOLE [Concomitant]
     Active Substance: FLUCONAZOLE

REACTIONS (1)
  - Transaminases increased [Recovering/Resolving]

NARRATIVE: CASE EVENT DATE: 20230421
